FAERS Safety Report 13473771 (Version 3)
Quarter: 2017Q2

REPORT INFORMATION
  Report Type: Report from Study
  Country: US (occurrence: US)
  Receive Date: 20170424
  Receipt Date: 20170612
  Transmission Date: 20170830
  Serious: Yes (Hospitalization, Other)
  Sender: FDA-Public Use
  Company Number: US-JNJFOC-20150905171

PATIENT
  Age: 66 Year
  Sex: Male

DRUGS (15)
  1. IMBRUVICA [Suspect]
     Active Substance: IBRUTINIB
     Indication: CHRONIC LYMPHOCYTIC LEUKAEMIA
     Route: 048
     Dates: start: 20161129
  2. VALACYCLOVIR [Concomitant]
     Active Substance: VALACYCLOVIR HYDROCHLORIDE
  3. IMODIUM [Concomitant]
     Active Substance: LOPERAMIDE HYDROCHLORIDE
  4. CALCIUM AND VIT D [Concomitant]
     Active Substance: CALCIUM\VITAMIN D
  5. CALCIUM CARBONATE. [Concomitant]
     Active Substance: CALCIUM CARBONATE
  6. IMBRUVICA [Suspect]
     Active Substance: IBRUTINIB
     Indication: CHRONIC LYMPHOCYTIC LEUKAEMIA
     Route: 048
     Dates: start: 20161201, end: 201703
  7. IMBRUVICA [Suspect]
     Active Substance: IBRUTINIB
     Indication: CHRONIC LYMPHOCYTIC LEUKAEMIA
     Route: 048
     Dates: start: 20151110, end: 20160924
  8. ALLOPURINOL. [Concomitant]
     Active Substance: ALLOPURINOL
  9. FLONASE [Concomitant]
     Active Substance: FLUTICASONE PROPIONATE
  10. IMBRUVICA [Suspect]
     Active Substance: IBRUTINIB
     Indication: CHRONIC LYMPHOCYTIC LEUKAEMIA
     Route: 048
     Dates: start: 20150610, end: 20160924
  11. LOPERAMIDE [Concomitant]
     Active Substance: LOPERAMIDE
  12. ELON DUAL DEFENSE ANTI-FUNGAL FORMULA [Concomitant]
  13. IMBRUVICA [Suspect]
     Active Substance: IBRUTINIB
     Indication: CHRONIC LYMPHOCYTIC LEUKAEMIA
     Route: 048
     Dates: start: 20150225
  14. IMBRUVICA [Suspect]
     Active Substance: IBRUTINIB
     Indication: CHRONIC LYMPHOCYTIC LEUKAEMIA
     Route: 048
     Dates: start: 20161201
  15. ASPIRIN. [Concomitant]
     Active Substance: ASPIRIN

REACTIONS (28)
  - Skin injury [Not Recovered/Not Resolved]
  - Nail disorder [Unknown]
  - Memory impairment [Unknown]
  - Night sweats [Unknown]
  - Dizziness [Not Recovered/Not Resolved]
  - Joint swelling [Unknown]
  - Onychoclasis [Unknown]
  - Skin atrophy [Unknown]
  - Platelet count decreased [Recovered/Resolved]
  - Impaired healing [Unknown]
  - Dry skin [Unknown]
  - Drug dose omission [Unknown]
  - Pain in extremity [Not Recovered/Not Resolved]
  - Fatigue [Unknown]
  - Blood test abnormal [Unknown]
  - Incorrect dose administered [Recovered/Resolved]
  - Onychomycosis [Unknown]
  - Increased tendency to bruise [Unknown]
  - Hospitalisation [Unknown]
  - Immunodeficiency [Unknown]
  - Cellulitis [Unknown]
  - Muscle spasms [Unknown]
  - Rash erythematous [Not Recovered/Not Resolved]
  - Laceration [Unknown]
  - Haemoglobin decreased [Unknown]
  - Off label use [Recovered/Resolved]
  - Haemorrhage [Unknown]
  - Nail discolouration [Unknown]

NARRATIVE: CASE EVENT DATE: 2015
